FAERS Safety Report 13375311 (Version 1)
Quarter: 2017Q1

REPORT INFORMATION
  Report Type: Spontaneous
  Country: FR (occurrence: FR)
  Receive Date: 20170327
  Receipt Date: 20170327
  Transmission Date: 20170429
  Serious: Yes (Other)
  Sender: FDA-Public Use
  Company Number: FR-BAXTER-2017BAX012913

PATIENT
  Sex: Male

DRUGS (2)
  1. PHOXILIUM [Suspect]
     Active Substance: CALCIUM CHLORIDE\MAGNESIUM CHLORIDE\POTASSIUM CHLORIDE\SODIUM BICARBONATE\SODIUM CHLORIDE\SODIUM PHOSPHATE, DIBASIC
     Indication: CONTINUOUS HAEMODIAFILTRATION
     Route: 042
     Dates: start: 201703, end: 20170316
  2. REGIOCIT [Suspect]
     Active Substance: SODIUM CHLORIDE\SODIUM CITRATE
     Indication: CONTINUOUS HAEMODIAFILTRATION
     Route: 042
     Dates: start: 201703

REACTIONS (2)
  - Hyperkalaemia [Not Recovered/Not Resolved]
  - Contraindicated product administered [Recovered/Resolved]

NARRATIVE: CASE EVENT DATE: 201703
